FAERS Safety Report 11492222 (Version 1)
Quarter: 2015Q3

REPORT INFORMATION
  Report Type: Spontaneous
  Country: US (occurrence: None)
  Receive Date: 20150910
  Receipt Date: 20150910
  Transmission Date: 20151125
  Serious: No
  Sender: FDA-Public Use
  Company Number: None

PATIENT
  Age: 76 Year
  Sex: Female
  Weight: 58.97 kg

DRUGS (4)
  1. AMOXICILLIN. [Suspect]
     Active Substance: AMOXICILLIN
     Indication: SINUSITIS
     Dosage: 1 CAPSULE
     Route: 048
     Dates: start: 20150720, end: 20150720
  2. CENTRUM SILVER FOR ADULTS 50+ [Concomitant]
  3. AMOXICILLIN. [Suspect]
     Active Substance: AMOXICILLIN
     Indication: MULTIPLE ALLERGIES
     Dosage: 1 CAPSULE
     Route: 048
     Dates: start: 20150720, end: 20150720
  4. AMOXICILLIN. [Suspect]
     Active Substance: AMOXICILLIN
     Indication: EAR DISORDER
     Dosage: 1 CAPSULE
     Route: 048
     Dates: start: 20150720, end: 20150720

REACTIONS (1)
  - Diarrhoea [None]

NARRATIVE: CASE EVENT DATE: 20150720
